FAERS Safety Report 8183443-2 (Version None)
Quarter: 2012Q1

REPORT INFORMATION
  Report Type: 
  Country: None (occurrence: None)
  Receive Date: 20120130
  Receipt Date: 20110726
  Transmission Date: 20120608
  Serious: Yes (Other)
  Sender: FDA-Public Use
  Company Number: 037070

PATIENT
  Sex: Male

DRUGS (7)
  1. AGGRENOX [Concomitant]
  2. KEPPRA [Suspect]
     Dosage: (750 MG: 4 TABLETS), (3750 MG)
  3. PRILOSEC [Concomitant]
  4. VERAPAMIL [Concomitant]
  5. DIOVAN /01347001/ [Concomitant]
  6. LACOSAMIDE [Suspect]
     Dosage: (200 MG 2 TABLETS), (300 MG)
  7. NORCO [Concomitant]

REACTIONS (1)
  - PNEUMOTHORAX [None]
